FAERS Safety Report 15411145 (Version 1)
Quarter: 2018Q3

REPORT INFORMATION
  Report Type: Spontaneous
  Country: US (occurrence: US)
  Receive Date: 20180919
  Receipt Date: 20180919
  Transmission Date: 20181010
  Serious: No
  Sender: FDA-Public Use
  Company Number: None

PATIENT
  Age: 36 Year
  Sex: Female
  Weight: 56.7 kg

DRUGS (1)
  1. SUBOXONE [Suspect]
     Active Substance: BUPRENORPHINE HYDROCHLORIDE\NALOXONE HYDROCHLORIDE

REACTIONS (6)
  - Malaise [None]
  - Abdominal pain upper [None]
  - Diarrhoea [None]
  - Nausea [None]
  - Vomiting [None]
  - Hot flush [None]

NARRATIVE: CASE EVENT DATE: 20180914
